FAERS Safety Report 7585536-7 (Version None)
Quarter: 2011Q2

REPORT INFORMATION
  Report Type: 
  Country: None (occurrence: None)
  Receive Date: 20110624
  Receipt Date: 20110610
  Transmission Date: 20111010
  Serious: Yes (Hospitalization)
  Sender: FDA-Public Use
  Company Number: 1000021526

PATIENT
  Age: 82 Year
  Sex: Female

DRUGS (6)
  1. PRAVALOTIN (PRAVASTATIN SODIUM) (TABLETS) (PRAVASTATIN SODIUM) [Concomitant]
  2. MOTILIUM (DOMPERIDONE MALEATE) (TABLETS) (DOMPERIDONE MALEATE) [Concomitant]
  3. MARCUMAR (PHENPROCOUMON) (TABLETS) (PHENPROCOUMON) [Concomitant]
  4. ESCITALOPRAM [Suspect]
     Dosage: 5 MG (5 MG,1 IN 1 D), ORAL
     Route: 048
     Dates: start: 20110301, end: 20110303
  5. ZESTRIL [Suspect]
     Dosage: 20 MG (20 MG,1 IN 1 D), ORAL
     Route: 048
     Dates: start: 20110226
  6. STILNOX (ZOLPIDEM) (TABLETS) (ZOLPIDEM) [Concomitant]

REACTIONS (6)
  - HAEMORRHAGE [None]
  - HYPONATRAEMIA [None]
  - LABORATORY TEST INTERFERENCE [None]
  - CEREBROVASCULAR INSUFFICIENCY [None]
  - HEADACHE [None]
  - ANAEMIA [None]
